FAERS Safety Report 7013962-3 (Version None)
Quarter: 2010Q3

REPORT INFORMATION
  Report Type: 
  Country: None (occurrence: None)
  Receive Date: 20100924
  Receipt Date: 20100913
  Transmission Date: 20110219
  Serious: Yes (Hospitalization)
  Sender: FDA-Public Use
  Company Number: DE-AMGEN-QUU440353

PATIENT
  Age: 62 Year
  Sex: Female

DRUGS (6)
  1. ENBREL [Suspect]
     Indication: RHEUMATOID ARTHRITIS
     Route: 058
     Dates: start: 20100311
  2. METFORMIN [Concomitant]
     Indication: DIABETES MELLITUS
     Dosage: UNKNOWN
  3. IBUPROFEN [Concomitant]
     Dosage: 800MG AS NEEDED
  4. PREDNISOLONE [Concomitant]
     Dosage: 10MG (FREQUENCY UNKNOWN)
  5. ARAVA [Concomitant]
     Dosage: 10MG (FREQUENCY UNKNOWN)
  6. GLUCOCORTICOIDS [Concomitant]

REACTIONS (3)
  - DIARRHOEA [None]
  - EMPHYSEMA [None]
  - PLEURAL INFECTION BACTERIAL [None]
